FAERS Safety Report 16829652 (Version 1)
Quarter: 2019Q3

REPORT INFORMATION
  Report Type: Report from Study
  Country: NL (occurrence: NL)
  Receive Date: 20190919
  Receipt Date: 20190919
  Transmission Date: 20191005
  Serious: Yes (Other)
  Sender: FDA-Public Use
  Company Number: NL-JNJFOC-20190912354

PATIENT

DRUGS (2)
  1. CAELYX [Suspect]
     Active Substance: DOXORUBICIN HYDROCHLORIDE
     Indication: NEUROFIBROSARCOMA
     Dosage: FOR 2 DAYS, CUMULATIVE DOSE 300 MG/M2
     Route: 065
  2. IFOSFAMIDE. [Suspect]
     Active Substance: IFOSFAMIDE
     Indication: NEUROFIBROSARCOMA
     Dosage: FOR 3 DAYS
     Route: 065

REACTIONS (10)
  - Encephalopathy [Unknown]
  - Seizure [Unknown]
  - Infection [Unknown]
  - Respiratory failure [Unknown]
  - Off label use [Unknown]
  - Mucosal inflammation [Unknown]
  - Bone marrow failure [Unknown]
  - Neuropathy peripheral [Unknown]
  - Cardiomyopathy [Unknown]
  - Product use in unapproved indication [Unknown]
